FAERS Safety Report 5969715-8 (Version None)
Quarter: 2008Q4

REPORT INFORMATION
  Report Type: 
  Country: None (occurrence: None)
  Receive Date: 20081126
  Receipt Date: 20081114
  Transmission Date: 20090506
  Serious: Yes (Death, Life-Threatening, Hospitalization)
  Sender: FDA-Public Use
  Company Number: JP-PFIZER INC-2008087490

PATIENT
  Age: 73 Year
  Sex: Female

DRUGS (2)
  1. ZYVOX [Suspect]
     Indication: MEDIASTINITIS
     Dosage: DAILY DOSE:600MG
     Route: 042
     Dates: start: 20080922
  2. VANCOMYCIN [Concomitant]
     Dates: end: 20081001

REACTIONS (2)
  - MEDIASTINITIS [None]
  - THROMBOCYTOPENIA [None]
